FAERS Safety Report 5014866-8 (Version None)
Quarter: 2006Q2

REPORT INFORMATION
  Report Type: 
  Country: None (occurrence: None)
  Receive Date: 20060412
  Receipt Date: 20050406
  Transmission Date: 20061013
  Serious: Yes (Hospitalization)
  Sender: FDA-Public Use
  Company Number: 2005-BP-03328BP

PATIENT
  Sex: Male

DRUGS (1)
  1. MOBIC [Suspect]
     Dosage: 7.5 MG (7.5 MG, 1 QD), PO
     Route: 048

REACTIONS (2)
  - GASTRIC ULCER [None]
  - LOWER GASTROINTESTINAL HAEMORRHAGE [None]
